FAERS Safety Report 5391649-0 (Version None)
Quarter: 2007Q3

REPORT INFORMATION
  Report Type: 
  Country: None (occurrence: None)
  Receive Date: 20070719
  Receipt Date: 20070710
  Transmission Date: 20080115
  Serious: Yes (Other)
  Sender: FDA-Public Use
  Company Number: GB-JNJFOC-20070702266

PATIENT
  Sex: Female
  Weight: 71 kg

DRUGS (10)
  1. REMICADE [Suspect]
     Indication: RHEUMATOID ARTHRITIS
     Route: 042
  2. METHOTREXATE [Concomitant]
  3. CANDESARTAN [Concomitant]
  4. DICLOMAX [Concomitant]
  5. FOLIC ACID [Concomitant]
  6. LANSOPRAZOLE [Concomitant]
  7. RALOXIFENE HCL [Concomitant]
  8. LEVOTHYROXINE SODIUM [Concomitant]
  9. TRAMADOL HCL [Concomitant]
  10. ZOPICLONE [Concomitant]

REACTIONS (2)
  - COUGH [None]
  - SKIN LESION [None]
